FAERS Safety Report 18049002 (Version 3)
Quarter: 2020Q3

REPORT INFORMATION
  Report Type: Spontaneous
  Country: IT (occurrence: IT)
  Receive Date: 20200721
  Receipt Date: 20200820
  Transmission Date: 20201103
  Serious: Yes (Hospitalization, Other)
  Sender: FDA-Public Use
  Company Number: IT-PFIZER INC-2020274959

PATIENT
  Age: 37 Year
  Sex: Male
  Weight: 71 kg

DRUGS (6)
  1. DOXORUBICIN HCL [Suspect]
     Active Substance: DOXORUBICIN HYDROCHLORIDE
     Indication: NON-HODGKIN^S LYMPHOMA
     Dosage: 300MG/M2  CYCLIC (6 CYCLES)
     Route: 042
  2. CYCLOPHOSPHAMIDE. [Interacting]
     Active Substance: CYCLOPHOSPHAMIDE
     Indication: NON-HODGKIN^S LYMPHOMA
     Dosage: UNK, CYCLIC  (6 CYCLES)
  3. PREDNISONE. [Interacting]
     Active Substance: PREDNISONE
     Indication: NON-HODGKIN^S LYMPHOMA
     Dosage: UNK, CYCLIC (6 CYCLES)
  4. MITOXANTRONE HCL [Interacting]
     Active Substance: MITOXANTRONE HYDROCHLORIDE
     Indication: NON-HODGKIN^S LYMPHOMA
     Dosage: 30 MG/M2
     Route: 042
  5. CYTARABINE. [Interacting]
     Active Substance: CYTARABINE
     Indication: NON-HODGKIN^S LYMPHOMA
     Dosage: UNK (HIGH DOSE)
  6. VINCRISTINE SULFATE. [Interacting]
     Active Substance: VINCRISTINE SULFATE
     Indication: NON-HODGKIN^S LYMPHOMA
     Dosage: UNK, CYCLIC (6 CYCLES)

REACTIONS (14)
  - Drug interaction [Recovering/Resolving]
  - Ventricular hypokinesia [Recovering/Resolving]
  - Sinus tachycardia [Recovering/Resolving]
  - Cardiomyopathy [Recovering/Resolving]
  - Pulmonary arterial pressure increased [Recovering/Resolving]
  - Left ventricular dilatation [Recovering/Resolving]
  - Ventricular dysfunction [Recovering/Resolving]
  - Cardiotoxicity [Recovering/Resolving]
  - Cardiac failure acute [Recovering/Resolving]
  - Neoplasm progression [Unknown]
  - Heart valve incompetence [Recovering/Resolving]
  - Oliguria [Recovering/Resolving]
  - Pulmonary oedema [Recovering/Resolving]
  - Cardiac failure [Recovering/Resolving]
